FAERS Safety Report 17654140 (Version 1)
Quarter: 2020Q2

REPORT INFORMATION
  Report Type: Spontaneous
  Country: CH (occurrence: CH)
  Receive Date: 20200410
  Receipt Date: 20200410
  Transmission Date: 20200713
  Serious: Yes (Congenital Anomaly, Other)
  Sender: FDA-Public Use
  Company Number: CH-MICRO LABS LIMITED-ML2020-01167

PATIENT

DRUGS (2)
  1. PIROXICAM. [Suspect]
     Active Substance: PIROXICAM
     Route: 064
  2. BETAMETHASONE. [Suspect]
     Active Substance: BETAMETHASONE
     Route: 064

REACTIONS (2)
  - Congenital cardiovascular anomaly [Unknown]
  - Foetal exposure during pregnancy [Unknown]
